FAERS Safety Report 6171921-7 (Version None)
Quarter: 2009Q2

REPORT INFORMATION
  Report Type: 
  Country: None (occurrence: None)
  Receive Date: 20090429
  Receipt Date: 20090416
  Transmission Date: 20091009
  Serious: Yes (Disabling)
  Sender: FDA-Public Use
  Company Number: DE-MERCK-0809DEU00093

PATIENT
  Age: 70 Year
  Sex: Male
  Weight: 70 kg

DRUGS (10)
  1. VYTORIN [Suspect]
     Route: 048
  2. LEVETIRACETAM [Concomitant]
     Indication: MYOCLONUS
     Route: 048
     Dates: start: 20070401, end: 20070901
  3. LEVETIRACETAM [Concomitant]
     Route: 048
     Dates: start: 20070902, end: 20070101
  4. LEVETIRACETAM [Concomitant]
     Route: 065
     Dates: start: 20070101, end: 20070101
  5. LEVETIRACETAM [Concomitant]
     Route: 065
     Dates: start: 20071101, end: 20070101
  6. LEVETIRACETAM [Concomitant]
     Route: 065
  7. ASPIRIN [Suspect]
     Route: 048
  8. METOPROLOL SUCCINATE [Suspect]
     Route: 048
  9. RAMIPRIL [Suspect]
     Route: 048
  10. RAMIPRIL [Suspect]
     Route: 048

REACTIONS (8)
  - AGEUSIA [None]
  - ASTHENIA [None]
  - CEREBELLAR SYNDROME [None]
  - EAR DISORDER [None]
  - INFECTION [None]
  - INNER EAR DISORDER [None]
  - MENTAL DISORDER [None]
  - NERVOUS SYSTEM DISORDER [None]
